FAERS Safety Report 5772092-9 (Version None)
Quarter: 2008Q2

REPORT INFORMATION
  Report Type: 
  Country: None (occurrence: None)
  Receive Date: 20080611
  Receipt Date: 20080417
  Transmission Date: 20081010
  Serious: No
  Sender: FDA-Public Use
  Company Number: 001#2#2008-00253

PATIENT
  Age: 43 Year
  Sex: Male

DRUGS (2)
  1. NEUPRO [Suspect]
     Indication: PARKINSONISM
     Dosage: 8 MG/24H (8 MG/24H 1 IN 1 DAY(S))
     Route: 062
     Dates: start: 20080313
  2. PRAMIPEXOLE-DIHYDROCHLORIDE (PRAMIPEXOLE DIHYDROCHLORIDE) [Concomitant]

REACTIONS (1)
  - DRUG EFFECT DECREASED [None]
